FAERS Safety Report 5829714-3 (Version None)
Quarter: 2008Q3

REPORT INFORMATION
  Report Type: 
  Country: None (occurrence: None)
  Receive Date: 20080801
  Receipt Date: 20080722
  Transmission Date: 20090109
  Serious: Yes (Other)
  Sender: FDA-Public Use
  Company Number: AU-WYE-G01638608

PATIENT
  Sex: Female

DRUGS (1)
  1. EFFEXOR [Suspect]
     Dosage: ^250MG^

REACTIONS (3)
  - AMENORRHOEA [None]
  - BRAIN HYPOXIA [None]
  - SUICIDE ATTEMPT [None]
